FAERS Safety Report 4990321-6 (Version None)
Quarter: 2006Q2

REPORT INFORMATION
  Report Type: 
  Country: None (occurrence: None)
  Receive Date: 20060427
  Receipt Date: 20060416
  Transmission Date: 20061013
  Serious: Yes (Other)
  Sender: FDA-Public Use
  Company Number: 2006RL000132

PATIENT
  Age: 74 Year
  Sex: Male

DRUGS (3)
  1. PROPRANOLOL HYDROCHLORIDE [Suspect]
     Indication: ESSENTIAL TREMOR
     Dosage: SEE IMAGE
  2. CIPROTERONE [Concomitant]
  3. OLANZAPINE [Concomitant]

REACTIONS (7)
  - DELIRIUM [None]
  - DEPRESSED LEVEL OF CONSCIOUSNESS [None]
  - DISORIENTATION [None]
  - DRUG TOXICITY [None]
  - FATIGUE [None]
  - INSOMNIA [None]
  - RESTLESSNESS [None]
